FAERS Safety Report 6093717-7 (Version None)
Quarter: 2009Q1

REPORT INFORMATION
  Report Type: 
  Country: None (occurrence: None)
  Receive Date: 20090223
  Receipt Date: 20090204
  Transmission Date: 20090719
  Serious: Yes (Life-Threatening, Hospitalization, Other)
  Sender: FDA-Public Use
  Company Number: 200812176GPV

PATIENT
  Age: 59 Year
  Sex: Male

DRUGS (7)
  1. FLUDARABINE PHOSPHATE [Suspect]
     Indication: CHRONIC LYMPHOCYTIC LEUKAEMIA
     Dosage: 80 MG, ORAL, 70 MG, ORAL
     Route: 048
     Dates: start: 20071218, end: 20071219
  2. FLUDARABINE PHOSPHATE [Suspect]
     Indication: CHRONIC LYMPHOCYTIC LEUKAEMIA
     Dosage: 80 MG, ORAL, 70 MG, ORAL
     Route: 048
     Dates: start: 20071220, end: 20071220
  3. CAMPATH [Suspect]
     Indication: CHRONIC LYMPHOCYTIC LEUKAEMIA
     Dosage: 30 MG, SUBCUTANEOUS
     Route: 058
     Dates: start: 20071218, end: 20071220
  4. CYCLOPHOSPHAMIDE [Suspect]
     Indication: CHRONIC LYMPHOCYTIC LEUKAEMIA
     Dosage: 450 MG, ORAL
     Route: 048
     Dates: start: 20071218, end: 20071220
  5. TRIMETHOPRIM SULPHAMETHOXAZOLE [Concomitant]
  6. PENTOROMINATE AEROSOLIZE [Concomitant]
  7. VALACYCLOVIR (VALACICLOVIR) [Concomitant]

REACTIONS (4)
  - DISEASE COMPLICATION [None]
  - MENINGITIS PNEUMOCOCCAL [None]
  - NEUTROPENIA [None]
  - PNEUMOCOCCAL SEPSIS [None]
